FAERS Safety Report 12261664 (Version 4)
Quarter: 2016Q4

REPORT INFORMATION
  Report Type: Report from Study
  Country: FR (occurrence: FR)
  Receive Date: 20160413
  Receipt Date: 20161026
  Transmission Date: 20170207
  Serious: Yes (Other)
  Sender: FDA-Public Use
  Company Number: FR-ROCHE-1739520

PATIENT
  Age: 65 Year
  Sex: Female

DRUGS (22)
  1. RANIBIZUMAB [Suspect]
     Active Substance: RANIBIZUMAB
     Dosage: REGIMEN 5
     Route: 050
     Dates: start: 20141230
  2. RANIBIZUMAB [Suspect]
     Active Substance: RANIBIZUMAB
     Dosage: 0.5 MG, LEFT EYE
     Route: 031
     Dates: start: 20160503
  3. RANIBIZUMAB [Suspect]
     Active Substance: RANIBIZUMAB
     Dosage: REGIMEN 7
     Route: 050
     Dates: start: 20150331, end: 20150331
  4. RANIBIZUMAB [Suspect]
     Active Substance: RANIBIZUMAB
     Dosage: REGIMEN 15
     Route: 050
     Dates: start: 20160119, end: 20160119
  5. RANIBIZUMAB [Suspect]
     Active Substance: RANIBIZUMAB
     Dosage: REGIMEN 9
     Route: 050
     Dates: start: 20150526
  6. RANIBIZUMAB [Suspect]
     Active Substance: RANIBIZUMAB
     Dosage: 0.5 MG, LEFT EYE
     Route: 031
     Dates: start: 20160830
  7. RANIBIZUMAB [Suspect]
     Active Substance: RANIBIZUMAB
     Indication: DIABETIC RETINAL OEDEMA
     Dosage: REGIMEN 1
     Route: 050
     Dates: start: 20140909
  8. RANIBIZUMAB [Suspect]
     Active Substance: RANIBIZUMAB
     Dosage: REGIMEN 4
     Route: 050
     Dates: start: 20141202
  9. RANIBIZUMAB [Suspect]
     Active Substance: RANIBIZUMAB
     Dosage: REGIMEN 12
     Route: 050
     Dates: start: 20150922
  10. RANIBIZUMAB [Suspect]
     Active Substance: RANIBIZUMAB
     Dosage: REGIMEN 14
     Route: 050
     Dates: start: 20151222
  11. RANIBIZUMAB [Suspect]
     Active Substance: RANIBIZUMAB
     Dosage: 0.5 MG, LEFT EYE
     Route: 031
     Dates: start: 20160531
  12. RANIBIZUMAB [Suspect]
     Active Substance: RANIBIZUMAB
     Dosage: 0.5 MG, LEFT EYE
     Route: 031
     Dates: start: 20160712
  13. RANIBIZUMAB [Suspect]
     Active Substance: RANIBIZUMAB
     Dosage: 0.5 MG, LEFT EYE
     Route: 031
     Dates: start: 20160927
  14. RANIBIZUMAB [Suspect]
     Active Substance: RANIBIZUMAB
     Dosage: REGIMEN 10
     Route: 050
     Dates: start: 20150728
  15. RANIBIZUMAB [Suspect]
     Active Substance: RANIBIZUMAB
     Dosage: REGIMEN 16
     Route: 050
     Dates: start: 20160216
  16. RANIBIZUMAB [Suspect]
     Active Substance: RANIBIZUMAB
     Dosage: REGIMEN 2
     Route: 050
     Dates: start: 20141007
  17. RANIBIZUMAB [Suspect]
     Active Substance: RANIBIZUMAB
     Dosage: REGIMEN 6
     Route: 050
     Dates: start: 20150127
  18. RANIBIZUMAB [Suspect]
     Active Substance: RANIBIZUMAB
     Dosage: REGIMEN 11
     Route: 050
     Dates: start: 20150825
  19. RANIBIZUMAB [Suspect]
     Active Substance: RANIBIZUMAB
     Dosage: REGIMEN 13
     Route: 050
     Dates: start: 20151020
  20. RANIBIZUMAB [Suspect]
     Active Substance: RANIBIZUMAB
     Dosage: 0.5 MG, LEFT EYE
     Route: 031
     Dates: start: 20160802
  21. RANIBIZUMAB [Suspect]
     Active Substance: RANIBIZUMAB
     Dosage: REGIMEN 3
     Route: 050
     Dates: start: 20141104
  22. RANIBIZUMAB [Suspect]
     Active Substance: RANIBIZUMAB
     Dosage: REGIMEN 8
     Route: 050
     Dates: start: 20150428

REACTIONS (6)
  - Nasopharyngitis [Unknown]
  - Headache [Recovered/Resolved]
  - Amaurosis [Recovered/Resolved]
  - Visual impairment [Recovered/Resolved]
  - Eye pain [Recovering/Resolving]
  - Inappropriate schedule of drug administration [Unknown]

NARRATIVE: CASE EVENT DATE: 201503
